FAERS Safety Report 6400454-5 (Version None)
Quarter: 2009Q4

REPORT INFORMATION
  Report Type: 
  Country: None (occurrence: None)
  Receive Date: 20091014
  Receipt Date: 20091001
  Transmission Date: 20100525
  Serious: Yes (Hospitalization)
  Sender: FDA-Public Use
  Company Number: FR-ELI_LILLY_AND_COMPANY-FR200908005174

PATIENT
  Age: 76 Year
  Sex: Male
  Weight: 61 kg

DRUGS (9)
  1. FORTEO [Suspect]
     Indication: OSTEOPOROSIS
     Dosage: 20 UG, DAILY (1/D)
     Route: 058
     Dates: start: 20080627
  2. KARDEGIC [Concomitant]
     Dosage: 160 MG, DAILY (1/D)
     Route: 048
  3. ACEBUTOLOL [Concomitant]
     Dosage: 0.5 D/F, DAILY (1/D)
     Route: 048
  4. COVERSYL [Concomitant]
     Dosage: 10 MG, DAILY (1/D)
     Route: 048
  5. INIPOMP [Concomitant]
     Dosage: 20 MG, DAILY (1/D)
     Route: 048
  6. TAHOR [Concomitant]
     Dosage: 20 MG, DAILY (1/D)
     Route: 048
  7. TRANSIPEG [Concomitant]
     Dosage: 20 MG, 2/D
     Route: 048
  8. OXYCONTIN [Concomitant]
     Dosage: 10 MG, 2/D
     Route: 048
  9. TEMESTA [Concomitant]
     Dosage: 1 MG, DAILY (1/D)
     Route: 048

REACTIONS (6)
  - ANIMAL SCRATCH [None]
  - BACTERIAL INFECTION [None]
  - GASTROENTERITIS [None]
  - MUSCULOSKELETAL PAIN [None]
  - PYREXIA [None]
  - TENDON CALCIFICATION [None]
